FAERS Safety Report 10775317 (Version 3)
Quarter: 2015Q1

REPORT INFORMATION
  Report Type: Spontaneous
  Country: US (occurrence: US)
  Receive Date: 20150209
  Receipt Date: 20150212
  Transmission Date: 20150721
  Serious: No
  Sender: FDA-Public Use
  Company Number: US-009507513-1502USA003447

PATIENT
  Weight: 71.4 kg

DRUGS (1)
  1. NEXPLANON [Suspect]
     Active Substance: ETONOGESTREL
     Route: 059
     Dates: start: 20150206

REACTIONS (2)
  - Medical device complication [Unknown]
  - No adverse event [Unknown]

NARRATIVE: CASE EVENT DATE: 20150206
